FAERS Safety Report 9325025 (Version 1)
Quarter: 2013Q2

REPORT INFORMATION
  Report Type: Spontaneous
  Country: US (occurrence: US)
  Receive Date: 20130603
  Receipt Date: 20130603
  Transmission Date: 20140414
  Serious: Yes (Death, Life-Threatening)
  Sender: FDA-Public Use
  Company Number: US-GILEAD-2013-0076273

PATIENT
  Age: 78 Year
  Sex: Female

DRUGS (9)
  1. LETAIRIS [Suspect]
     Indication: PRODUCT USED FOR UNKNOWN INDICATION
     Dosage: 10 MG, QD
     Dates: start: 20130311
  2. FOSAMAX [Concomitant]
  3. AMLODIPINE [Concomitant]
  4. AMBIEN [Concomitant]
  5. FLUOXETINE [Concomitant]
  6. OMEPRAZOLE [Concomitant]
  7. SIMVASTATIN [Concomitant]
  8. DEPAKOTE [Concomitant]
  9. ADCIRCA [Concomitant]

REACTIONS (1)
  - Death [Fatal]
